FAERS Safety Report 20947968 (Version 2)
Quarter: 2022Q2

REPORT INFORMATION
  Report Type: Report from Study
  Country: US (occurrence: US)
  Receive Date: 20220611
  Receipt Date: 20220620
  Transmission Date: 20220720
  Serious: Yes (Other)
  Sender: FDA-Public Use
  Company Number: US-NOVARTISPH-NVSC2022US133019

PATIENT
  Sex: Female

DRUGS (1)
  1. XIIDRA [Suspect]
     Active Substance: LIFITEGRAST
     Indication: Product used for unknown indication
     Route: 065

REACTIONS (7)
  - Sjogren^s syndrome [Unknown]
  - Sarcoidosis [Unknown]
  - Mixed connective tissue disease [Unknown]
  - Autoimmune thyroiditis [Unknown]
  - Brain injury [Unknown]
  - Lack of spontaneous speech [Unknown]
  - Hypoacusis [Unknown]
